FAERS Safety Report 7690244-8 (Version None)
Quarter: 2011Q3

REPORT INFORMATION
  Report Type: 
  Country: None (occurrence: None)
  Receive Date: 20110818
  Receipt Date: 20110811
  Transmission Date: 20111222
  Serious: No
  Sender: FDA-Public Use
  Company Number: US-PFIZER INC-2011185993

PATIENT
  Sex: Female

DRUGS (3)
  1. ROBITUSSIN DM [Suspect]
     Dosage: UNK
  2. NORVASC [Suspect]
     Indication: MYOCARDIAL INFARCTION
     Dosage: CUT THE 10MG AND TAKES 5MG IN THE MORNING AND 5MG AT THE NIGHT.
  3. CETIRIZINE HCL AND PSEUDOEPHEDRINE [Suspect]
     Dosage: UNK

REACTIONS (3)
  - BLOOD PRESSURE INCREASED [None]
  - OEDEMA PERIPHERAL [None]
  - MEDICATION ERROR [None]
